FAERS Safety Report 12777921 (Version 1)
Quarter: 2016Q3

REPORT INFORMATION
  Report Type: Spontaneous
  Country: US (occurrence: US)
  Receive Date: 20160924
  Receipt Date: 20160924
  Transmission Date: 20161109
  Serious: No
  Sender: FDA-Public Use
  Company Number: US-JAZZ-2016-US-010936

PATIENT
  Sex: Female

DRUGS (32)
  1. XYREM [Suspect]
     Active Substance: SODIUM OXYBATE
     Indication: NARCOLEPSY
     Dosage: 1.5 G, BID
     Route: 048
     Dates: start: 201103, end: 201103
  2. LAMICTAL [Concomitant]
     Active Substance: LAMOTRIGINE
  3. RELPAX [Concomitant]
     Active Substance: ELETRIPTAN HYDROBROMIDE
  4. HYOMAX [Concomitant]
     Active Substance: HYOSCYAMINE SULFATE
  5. OMEGA 3 FISH OIL [Concomitant]
     Active Substance: FISH OIL\OMEGA-3 FATTY ACIDS
  6. OMEPRAZOLE DR [Concomitant]
     Active Substance: OMEPRAZOLE
  7. CINNAMON. [Concomitant]
     Active Substance: CINNAMON
  8. CYMBALTA [Concomitant]
     Active Substance: DULOXETINE HYDROCHLORIDE
  9. EPIPEN [Concomitant]
     Active Substance: EPINEPHRINE
  10. VITAMIN B12 [Concomitant]
     Active Substance: CYANOCOBALAMIN
  11. ASCORBIC ACID. [Concomitant]
     Active Substance: ASCORBIC ACID
  12. ATORVASTATIN [Concomitant]
     Active Substance: ATORVASTATIN
  13. ESTRACE [Concomitant]
     Active Substance: ESTRADIOL
  14. METFORMIN HCL [Concomitant]
     Active Substance: METFORMIN HYDROCHLORIDE
  15. NUVIGIL [Concomitant]
     Active Substance: ARMODAFINIL
  16. DIMETHICONE. [Concomitant]
     Active Substance: DIMETHICONE
  17. VICTOZA [Concomitant]
     Active Substance: LIRAGLUTIDE
  18. CRANBERRY. [Concomitant]
     Active Substance: CRANBERRY
  19. LEVOTHYROXINE. [Concomitant]
     Active Substance: LEVOTHYROXINE
  20. PRILOSEC [Concomitant]
     Active Substance: OMEPRAZOLE MAGNESIUM
  21. XYREM [Suspect]
     Active Substance: SODIUM OXYBATE
     Indication: CATAPLEXY
     Dosage: DOSE ADJUSTMENTS
     Route: 048
     Dates: start: 201103, end: 201106
  22. XYREM [Suspect]
     Active Substance: SODIUM OXYBATE
     Dosage: 4.5 G, BID
     Route: 048
     Dates: start: 201106
  23. BENTYL [Concomitant]
     Active Substance: DICYCLOMINE HYDROCHLORIDE
  24. LISINOPRIL. [Concomitant]
     Active Substance: LISINOPRIL
  25. ATENOLOL. [Concomitant]
     Active Substance: ATENOLOL
  26. LAMOTRIGINE. [Concomitant]
     Active Substance: LAMOTRIGINE
  27. VITAMIN D [Concomitant]
     Active Substance: CHOLECALCIFEROL
  28. NOVOLIN [Concomitant]
     Active Substance: INSULIN HUMAN
  29. FISH OIL CONCENTRATE [Concomitant]
  30. LASIX [Concomitant]
     Active Substance: FUROSEMIDE
  31. ONDANSETRON [Concomitant]
     Active Substance: ONDANSETRON
  32. SERTRALINE HCL [Concomitant]
     Active Substance: SERTRALINE HYDROCHLORIDE

REACTIONS (1)
  - Malaise [Unknown]
